FAERS Safety Report 14101959 (Version 3)
Quarter: 2018Q3

REPORT INFORMATION
  Report Type: Spontaneous
  Country: GB (occurrence: GB)
  Receive Date: 20171018
  Receipt Date: 20180727
  Transmission Date: 20181010
  Serious: Yes (Other)
  Sender: FDA-Public Use
  Company Number: GB-VERTEX PHARMACEUTICALS-2017-005637

PATIENT
  Age: 56 Year
  Sex: Male

DRUGS (16)
  1. SALBUTAMOL [Concomitant]
     Active Substance: ALBUTEROL
     Dosage: 2.5 MG, QD
     Route: 055
  2. TIOTROPIUM [Concomitant]
     Active Substance: TIOTROPIUM
     Dosage: 5 MG, QD
     Route: 055
  3. CREON [Concomitant]
     Active Substance: PANCRELIPASE AMYLASE\PANCRELIPASE LIPASE\PANCRELIPASE PROTEASE
     Dosage: 4?8 CAPSULES WITH MEALS
  4. DORNASE ALFA. [Concomitant]
     Active Substance: DORNASE ALFA
     Dosage: 2.5 MG, BID
     Route: 055
  5. FRUSEMIDE                          /00032601/ [Concomitant]
     Active Substance: FUROSEMIDE
     Dosage: 40 MG, QD
  6. SALINE                             /00075401/ [Concomitant]
     Active Substance: SODIUM CHLORIDE
     Dosage: UNK, QD
     Route: 055
  7. ORKAMBI [Suspect]
     Active Substance: IVACAFTOR\LUMACAFTOR
     Indication: CYSTIC FIBROSIS
     Dosage: 1 (200/125 MG EACH), QD
     Route: 048
     Dates: start: 20171004, end: 20171010
  8. SYMBICORT [Concomitant]
     Active Substance: BUDESONIDE\FORMOTEROL FUMARATE DIHYDRATE
     Dosage: 2 DOSAGE FORM, BID
     Route: 055
  9. VITAMIN E                          /00110501/ [Concomitant]
     Active Substance: TOCOPHEROL
     Dosage: 1 DOSAGE FORM, QD
  10. PREDNISOLONE. [Concomitant]
     Active Substance: PREDNISOLONE
     Dosage: 5 MG, QD
  11. SPIRONOLACTONE. [Concomitant]
     Active Substance: SPIRONOLACTONE
     Dosage: 50 MG, QD
  12. OMEPRAZOLE. [Concomitant]
     Active Substance: OMEPRAZOLE
     Dosage: 20 MG, QD
  13. URSODEOXYCHOLIC ACID [Concomitant]
     Active Substance: URSODIOL
     Dosage: 750 MG, BID
  14. DORNASE ALFA. [Concomitant]
     Active Substance: DORNASE ALFA
     Dosage: INCREASED
  15. VITAMIN A + D [Concomitant]
     Dosage: 2 DOSAGE FORM, BID
  16. VITAMIN K [Concomitant]
     Active Substance: PHYTONADIONE
     Dosage: 10 MG, QD

REACTIONS (6)
  - Respiratory failure [Recovering/Resolving]
  - Blood alkaline phosphatase increased [Recovering/Resolving]
  - Infection [Unknown]
  - Dyspnoea [Recovering/Resolving]
  - Gamma-glutamyltransferase increased [Recovered/Resolved]
  - Blood bilirubin increased [Recovered/Resolved]

NARRATIVE: CASE EVENT DATE: 201710
